FAERS Safety Report 22080545 (Version 4)
Quarter: 2023Q1

REPORT INFORMATION
  Report Type: Spontaneous
  Country: RU (occurrence: RU)
  Receive Date: 20230309
  Receipt Date: 20230329
  Transmission Date: 20230417
  Serious: Yes (Hospitalization)
  Sender: FDA-Public Use
  Company Number: RU-002147023-NVSC2023RU052241

PATIENT

DRUGS (1)
  1. ZOLGENSMA [Suspect]
     Active Substance: ONASEMNOGENE ABEPARVOVEC-XIOI
     Indication: Spinal muscular atrophy
     Dosage: 1.1 X 1014 VECTOR GENOMES/KG, ONCE/SINGLE
     Route: 042
     Dates: start: 20221003

REACTIONS (5)
  - Aspiration [Recovered/Resolved]
  - Purulent discharge [Recovered/Resolved]
  - Bacterial infection [Recovered/Resolved]
  - Pneumonia influenzal [Recovered/Resolved]
  - Productive cough [Unknown]
